FAERS Safety Report 9255033 (Version 2)
Quarter: 2013Q3

REPORT INFORMATION
  Report Type: Report from Study
  Country: US (occurrence: US)
  Receive Date: 20130425
  Receipt Date: 20130715
  Transmission Date: 20140515
  Serious: No
  Sender: FDA-Public Use
  Company Number: US-009507513-1304USA014282

PATIENT
  Age: 25 Year
  Sex: Female

DRUGS (3)
  1. RIBAVIRIN [Suspect]
     Indication: HEPATITIS C
     Dosage: 800 MG, QD
     Route: 048
     Dates: start: 20120702, end: 20121105
  2. RIBAVIRIN [Suspect]
     Dosage: UNK
  3. INTERFERON ALFA [Suspect]
     Indication: HEPATITIS C
     Dosage: 180 MICROGRAM, QW
     Route: 058
     Dates: start: 20120702, end: 20121105

REACTIONS (1)
  - Maternal exposure before pregnancy [Unknown]
